FAERS Safety Report 8230392-7 (Version None)
Quarter: 2012Q1

REPORT INFORMATION
  Report Type: 
  Country: None (occurrence: None)
  Receive Date: 20120323
  Receipt Date: 20120313
  Transmission Date: 20120608
  Serious: Yes (Other)
  Sender: FDA-Public Use
  Company Number: US-BAYER-2012-016435

PATIENT
  Age: 20 Year
  Sex: Female
  Weight: 75.737 kg

DRUGS (2)
  1. MIRENA [Suspect]
     Indication: CONTRACEPTION
     Dosage: UNK
     Route: 015
     Dates: start: 20111215, end: 20111215
  2. MIRENA [Suspect]
     Indication: METRORRHAGIA

REACTIONS (2)
  - COMPLICATION OF DEVICE INSERTION [None]
  - DEVICE DISLOCATION [None]
